FAERS Safety Report 7059589-9 (Version None)
Quarter: 2010Q4

REPORT INFORMATION
  Report Type: 
  Country: None (occurrence: None)
  Receive Date: 20101025
  Receipt Date: 20101018
  Transmission Date: 20110411
  Serious: Yes (Death, Other)
  Sender: FDA-Public Use
  Company Number: PHHY2010NL69128

PATIENT
  Sex: Female

DRUGS (1)
  1. ZOMETA [Suspect]
     Indication: BREAST CANCER METASTATIC
     Dosage: 4 MG/5 ML
     Dates: end: 20100922

REACTIONS (8)
  - ASTHENIA [None]
  - BEDRIDDEN [None]
  - BONE DISORDER [None]
  - GENERAL PHYSICAL HEALTH DETERIORATION [None]
  - HIP FRACTURE [None]
  - MUSCLE DISORDER [None]
  - OCULAR NEOPLASM [None]
  - WEIGHT DECREASED [None]
